FAERS Safety Report 6661743-2 (Version None)
Quarter: 2010Q1

REPORT INFORMATION
  Report Type: 
  Country: None (occurrence: None)
  Receive Date: 20100331
  Receipt Date: 20090529
  Transmission Date: 20100710
  Serious: Yes (Other)
  Sender: FDA-Public Use
  Company Number: US-BRISTOL-MYERS SQUIBB COMPANY-14635734

PATIENT

DRUGS (2)
  1. ERBITUX [Suspect]
     Dates: end: 20090501
  2. RADIATION THERAPY [Suspect]
     Dosage: INTENSITY-MODULATED RADIATION THERAPY DELAYED UP TO 3 WEEKS DUE TO SEVERE SKIN TOXICITY

REACTIONS (1)
  - SKIN TOXICITY [None]
